FAERS Safety Report 25951378 (Version 1)
Quarter: 2025Q4

REPORT INFORMATION
  Report Type: Spontaneous
  Country: US (occurrence: US)
  Receive Date: 20251023
  Receipt Date: 20251023
  Transmission Date: 20260117
  Serious: Yes (Hospitalization, Other)
  Sender: ABBVIE
  Company Number: US-ABBVIE-6509539

PATIENT
  Age: 72 Year
  Sex: Female

DRUGS (2)
  1. HUMIRA [Suspect]
     Active Substance: ADALIMUMAB
     Indication: Rheumatoid arthritis
     Dosage: STARTED 7 OR 8 YEARS AGO
     Route: 058
     Dates: start: 2017
  2. LEFLUNOMIDE [Concomitant]
     Active Substance: LEFLUNOMIDE
     Indication: Rheumatoid arthritis

REACTIONS (13)
  - Atrioventricular block [Unknown]
  - Wrist fracture [Recovering/Resolving]
  - Memory impairment [Not Recovered/Not Resolved]
  - Balance disorder [Recovered/Resolved]
  - Arthropathy [Recovering/Resolving]
  - Fall [Recovered/Resolved]
  - Concussion [Unknown]
  - Heart rate decreased [Unknown]
  - Joint dislocation [Recovered/Resolved]
  - Loss of consciousness [Recovered/Resolved]
  - Device issue [Not Recovered/Not Resolved]
  - Loss of consciousness [Recovered/Resolved]
  - Memory impairment [Unknown]

NARRATIVE: CASE EVENT DATE: 20241201
